FAERS Safety Report 10528518 (Version 3)
Quarter: 2014Q4

REPORT INFORMATION
  Report Type: Spontaneous
  Country: JP (occurrence: JP)
  Receive Date: 20141020
  Receipt Date: 20141104
  Transmission Date: 20150528
  Serious: Yes (Life-Threatening, Other)
  Sender: FDA-Public Use
  Company Number: JP-BRISTOL-MYERS SQUIBB COMPANY-21438528

PATIENT
  Age: 63 Year
  Sex: Male
  Weight: 75 kg

DRUGS (2)
  1. ELIQUIS [Suspect]
     Active Substance: APIXABAN
     Indication: CEREBROVASCULAR ACCIDENT PROPHYLAXIS
     Dosage: ELIQUIS LAST DOSE: 2.5 MG X 2 TABLETS
     Route: 048
  2. WARFARIN POTASSIUM [Suspect]
     Active Substance: WARFARIN POTASSIUM
     Indication: ATRIAL FIBRILLATION
     Route: 048
     Dates: start: 2003, end: 20140918

REACTIONS (2)
  - Hypertension [Unknown]
  - Haemorrhagic infarction [Recovered/Resolved with Sequelae]

NARRATIVE: CASE EVENT DATE: 20140920
